FAERS Safety Report 25768831 (Version 1)
Quarter: 2025Q3

REPORT INFORMATION
  Report Type: Spontaneous
  Country: TW (occurrence: TW)
  Receive Date: 20250905
  Receipt Date: 20250905
  Transmission Date: 20251021
  Serious: Yes (Hospitalization)
  Sender: MERCK SHARP & DOHME LLC
  Company Number: TW-009507513-2326363

PATIENT
  Age: 48 Year
  Sex: Male
  Weight: 77 kg

DRUGS (5)
  1. CUBICIN [Suspect]
     Active Substance: DAPTOMYCIN
     Indication: Product used for unknown indication
     Dosage: STRENGTH: 500MG
     Route: 042
     Dates: start: 20250718, end: 20250812
  2. CEFOPERAZONE\SULBACTAM [Concomitant]
     Active Substance: CEFOPERAZONE\SULBACTAM
     Dates: start: 20250713
  3. VANCOMYCIN [Concomitant]
     Active Substance: VANCOMYCIN
  4. FOSFOMYCIN [Concomitant]
     Active Substance: FOSFOMYCIN
  5. CEFTAROLINE [Concomitant]
     Active Substance: CEFTAROLINE
     Dates: start: 20250718

REACTIONS (1)
  - Pneumonitis [Unknown]

NARRATIVE: CASE EVENT DATE: 20250812
